FAERS Safety Report 13156609 (Version 19)
Quarter: 2020Q2

REPORT INFORMATION
  Report Type: Spontaneous
  Country: US (occurrence: US)
  Receive Date: 20170126
  Receipt Date: 20200402
  Transmission Date: 20200713
  Serious: Yes (Death, Hospitalization, Other)
  Sender: FDA-Public Use
  Company Number: US-ACTELION-A-US2017-149072

PATIENT
  Age: 65 Year
  Sex: Female
  Weight: 61.68 kg

DRUGS (34)
  1. SILDENAFIL CITRATE. [Concomitant]
     Active Substance: SILDENAFIL CITRATE
  2. COLACE [Concomitant]
     Active Substance: DOCUSATE SODIUM
  3. CHOLECALCIFEROL [Concomitant]
     Active Substance: CHOLECALCIFEROL
  4. EPOETIN [Concomitant]
     Active Substance: ERYTHROPOIETIN
  5. VELETRI [Suspect]
     Active Substance: EPOPROSTENOL
     Indication: PULMONARY ARTERIAL HYPERTENSION
     Dosage: 22 NG/KG, PER MIN
     Route: 042
  6. VELETRI [Suspect]
     Active Substance: EPOPROSTENOL
     Dosage: 23 NG/KG, PER MIN
     Route: 042
     Dates: start: 20161017
  7. GAS-X [Concomitant]
     Active Substance: DIMETHICONE
  8. LORAZEPAM. [Concomitant]
     Active Substance: LORAZEPAM
  9. PANTOPRAZOLE [Concomitant]
     Active Substance: PANTOPRAZOLE
  10. ONDANSETRON [Concomitant]
     Active Substance: ONDANSETRON
  11. REVATIO [Concomitant]
     Active Substance: SILDENAFIL CITRATE
  12. DIPHENHYDRAMINE. [Concomitant]
     Active Substance: DIPHENHYDRAMINE
  13. FERROUS SULFATE. [Concomitant]
     Active Substance: FERROUS SULFATE
  14. PROCRIT [Concomitant]
     Active Substance: ERYTHROPOIETIN
  15. VITAMIN D3 [Concomitant]
     Active Substance: CHOLECALCIFEROL
  16. CALCIUM CARBONATE. [Concomitant]
     Active Substance: CALCIUM CARBONATE
  17. LORATADINE. [Concomitant]
     Active Substance: LORATADINE
  18. ELIQUIS [Concomitant]
     Active Substance: APIXABAN
     Dosage: 10 MG, BID
  19. ACETAMINOPHEN. [Concomitant]
     Active Substance: ACETAMINOPHEN
  20. DOCUSATE [Concomitant]
     Active Substance: DOCUSATE
  21. MIDODRINE [Concomitant]
     Active Substance: MIDODRINE
  22. PEPCID [Concomitant]
     Active Substance: FAMOTIDINE
  23. ATIVAN [Concomitant]
     Active Substance: LORAZEPAM
  24. ZYRTEC [Concomitant]
     Active Substance: CETIRIZINE HYDROCHLORIDE
  25. OXYCODONE [Concomitant]
     Active Substance: OXYCODONE
  26. SIMETHICONE (DIMETHICONE) [Concomitant]
     Active Substance: DIMETHICONE
  27. ZOLPIDEM [Concomitant]
     Active Substance: ZOLPIDEM TARTRATE
  28. VELETRI [Suspect]
     Active Substance: EPOPROSTENOL
     Dosage: 24 NG/KG, PER MIN
     Route: 042
  29. OPSUMIT [Suspect]
     Active Substance: MACITENTAN
     Indication: PULMONARY ARTERIAL HYPERTENSION
     Dosage: 10 MG, QD
     Route: 048
     Dates: start: 20161229
  30. ALLOPURINOL. [Concomitant]
     Active Substance: ALLOPURINOL
  31. LEVOTHYROXINE. [Concomitant]
     Active Substance: LEVOTHYROXINE
  32. PRILOSEC [Concomitant]
     Active Substance: OMEPRAZOLE MAGNESIUM
  33. ZOLOFT [Concomitant]
     Active Substance: SERTRALINE HYDROCHLORIDE
  34. SERTRALINE [Concomitant]
     Active Substance: SERTRALINE HYDROCHLORIDE

REACTIONS (38)
  - Fluid overload [Unknown]
  - Intestinal polyp [Unknown]
  - Swelling [Unknown]
  - Nasal congestion [Not Recovered/Not Resolved]
  - Right ventricular failure [Unknown]
  - Internal haemorrhage [Unknown]
  - Transfusion [Unknown]
  - Rash macular [Not Recovered/Not Resolved]
  - Pulmonary arterial hypertension [Fatal]
  - Haemodynamic instability [Unknown]
  - Weight decreased [Unknown]
  - Oedema mucosal [Unknown]
  - Oedema [Unknown]
  - Oropharyngeal pain [Unknown]
  - Therapy non-responder [Not Recovered/Not Resolved]
  - Rash [Unknown]
  - Dyspnoea at rest [Unknown]
  - Hospitalisation [Unknown]
  - Pulmonary congestion [Unknown]
  - Oxygen saturation decreased [Unknown]
  - Gastrointestinal polyp haemorrhage [Unknown]
  - Hypotension [Unknown]
  - Arthralgia [Fatal]
  - Haemoglobin decreased [Recovered/Resolved]
  - Asthenia [Recovered/Resolved]
  - Palpitations [Unknown]
  - Erosive oesophagitis [Unknown]
  - Nausea [Unknown]
  - Device breakage [Recovered/Resolved]
  - Dyspnoea exertional [Unknown]
  - Hip fracture [Fatal]
  - Dyspnoea [Recovered/Resolved]
  - Peripheral swelling [Unknown]
  - Transient ischaemic attack [Unknown]
  - Fall [Unknown]
  - Muscle strain [Fatal]
  - Anaemia [Recovered/Resolved]
  - Fatigue [Recovered/Resolved]

NARRATIVE: CASE EVENT DATE: 20170101
